FAERS Safety Report 8680581 (Version 3)
Quarter: 2012Q4

REPORT INFORMATION
  Report Type: 
  Country: DE (occurrence: DE)
  Receive Date: 20120724
  Receipt Date: 20121022
  Transmission Date: 20130627
  Serious: Yes (Death, Hospitalization, Other)
  Sender: FDA-Public Use
  Company Number: DE-BRISTOL-MYERS SQUIBB COMPANY-16701179

PATIENT
  Age: 70 Year
  Sex: Male
  Weight: 72 kg

DRUGS (1)
  1. YERVOY [Suspect]
     Indication: METASTATIC MALIGNANT MELANOMA
     Dosage: 08Mar2012,03May2012: 220
     Route: 042
     Dates: start: 20120227

REACTIONS (7)
  - Jejunal perforation [Fatal]
  - Sepsis [Fatal]
  - Enterocolitis [Unknown]
  - Dehydration [Unknown]
  - Renal failure acute [Unknown]
  - Mental disorder due to a general medical condition [Unknown]
  - Dermatitis [Recovering/Resolving]
